FAERS Safety Report 5839215-4 (Version None)
Quarter: 2008Q3

REPORT INFORMATION
  Report Type: 
  Country: None (occurrence: None)
  Receive Date: 20080808
  Receipt Date: 20080728
  Transmission Date: 20090109
  Serious: Yes (Other)
  Sender: FDA-Public Use
  Company Number: US-PFIZER INC-2008061569

PATIENT
  Sex: Male
  Weight: 95.3 kg

DRUGS (11)
  1. CHANTIX [Suspect]
     Indication: EX-TOBACCO USER
  2. RISPERDAL [Suspect]
  3. HYDROXYZINE [Concomitant]
  4. SEROQUEL [Concomitant]
  5. DEPAKOTE [Concomitant]
  6. GLIPIZIDE [Concomitant]
  7. METFORMIN HCL [Concomitant]
  8. PRAVASTATIN [Concomitant]
  9. PROTONIX [Concomitant]
  10. ACETYLSALICYLIC ACID SRT [Concomitant]
  11. OTHER HYPNOTICS AND SEDATIVES [Concomitant]

REACTIONS (9)
  - ABNORMAL DREAMS [None]
  - BEDRIDDEN [None]
  - DEPRESSION [None]
  - DRUG WITHDRAWAL SYNDROME [None]
  - FATIGUE [None]
  - INSOMNIA [None]
  - PAIN IN EXTREMITY [None]
  - SOMNOLENCE [None]
  - UNEVALUABLE EVENT [None]
